FAERS Safety Report 4950731-X (Version None)
Quarter: 2006Q1

REPORT INFORMATION
  Report Type: 
  Country: None (occurrence: None)
  Receive Date: 20060321
  Receipt Date: 20060321
  Transmission Date: 20060701
  Serious: Yes (Other)
  Sender: FDA-Public Use
  Company Number: None

PATIENT
  Sex: Male
  Weight: 77.1115 kg

DRUGS (2)
  1. CEFAZOLIN [Suspect]
     Indication: DUPUYTREN'S CONTRACTURE OPERATION
     Dosage: ONCE   IV DRIP   (SINGLE USE FOR OPERATION)
     Route: 041
     Dates: start: 20060218, end: 20060218
  2. CEFAZOLIN [Suspect]
     Indication: LIMB OPERATION
     Dosage: ONCE   IV DRIP   (SINGLE USE FOR OPERATION)
     Route: 041
     Dates: start: 20060218, end: 20060218

REACTIONS (13)
  - ARTHRALGIA [None]
  - ASTHENIA [None]
  - BURSITIS [None]
  - CHILLS [None]
  - DYSPNOEA [None]
  - EYE DISORDER [None]
  - FATIGUE [None]
  - HEART RATE INCREASED [None]
  - MYALGIA [None]
  - PHARMACEUTICAL PRODUCT COMPLAINT [None]
  - POOR QUALITY DRUG ADMINISTERED [None]
  - SHOULDER PAIN [None]
  - SWELLING FACE [None]
